FAERS Safety Report 5045164-4 (Version None)
Quarter: 2006Q3

REPORT INFORMATION
  Report Type: 
  Country: None (occurrence: None)
  Receive Date: 20060705
  Receipt Date: 20060613
  Transmission Date: 20061208
  Serious: Yes (Other)
  Sender: FDA-Public Use
  Company Number: US200606003379

PATIENT
  Age: 98 Year
  Sex: Female

DRUGS (5)
  1. ZYPREXA [Suspect]
     Indication: PSYCHOTIC DISORDER
     Dosage: 10 MG DAILY (1/D)
     Dates: start: 20060101
  2. ZYPREXA [Suspect]
     Indication: PSYCHOTIC DISORDER
     Dosage: 10 MG DAILY (1/D)
     Dates: start: 20060605
  3. LEXAPRO /USA/ (ESCITALOPRAM) [Concomitant]
  4. COZAAR [Concomitant]
  5. EYE DROPS /USA/ (TETRYZOLINE HYDROCHLORIDE) [Concomitant]

REACTIONS (2)
  - AGITATION [None]
  - PSYCHOTIC DISORDER [None]
